FAERS Safety Report 10083212 (Version 1)
Quarter: 2014Q2

REPORT INFORMATION
  Report Type: Spontaneous
  Country: US (occurrence: US)
  Receive Date: 20140417
  Receipt Date: 20140417
  Transmission Date: 20141212
  Serious: Yes (Other)
  Sender: FDA-Public Use
  Company Number: US-BRISTOL-MYERS SQUIBB COMPANY-20630638

PATIENT
  Sex: Female

DRUGS (1)
  1. FORXIGA [Suspect]

REACTIONS (3)
  - Renal failure [Unknown]
  - Dizziness [Unknown]
  - Bacterial infection [Unknown]
